FAERS Safety Report 6032424-3 (Version None)
Quarter: 2008Q4

REPORT INFORMATION
  Report Type: 
  Country: None (occurrence: None)
  Receive Date: 20081222
  Receipt Date: 20080904
  Transmission Date: 20090506
  Serious: No
  Sender: FDA-Public Use
  Company Number: US-WYE-H05919508

PATIENT
  Age: 71 Year
  Sex: Female
  Weight: 81.72 kg

DRUGS (3)
  1. PRISTIQ [Suspect]
     Indication: DEPRESSION
     Dosage: 50 MG 1X PER 1 DAY, ORAL
     Route: 048
     Dates: start: 20080811
  2. ALLEGRA [Concomitant]
  3. IBUPROFEN (IBUPROFEN) [Concomitant]

REACTIONS (3)
  - DIZZINESS [None]
  - UNEVALUABLE EVENT [None]
  - VISION BLURRED [None]
